FAERS Safety Report 18411591 (Version 1)
Quarter: 2020Q4

REPORT INFORMATION
  Report Type: Spontaneous
  Country: US (occurrence: US)
  Receive Date: 20201021
  Receipt Date: 20201021
  Transmission Date: 20210114
  Serious: No
  Sender: FDA-Public Use
  Company Number: US-LUPIN PHARMACEUTICALS INC.-2020-01052

PATIENT
  Sex: Female

DRUGS (1)
  1. CEFTRIAXONE FOR INJECTION USP, 250 MG [Suspect]
     Active Substance: CEFTRIAXONE
     Indication: PRODUCT USED FOR UNKNOWN INDICATION
     Dosage: 250 MILLIGRAM, UNK
     Route: 030
     Dates: start: 20200224

REACTIONS (2)
  - No adverse event [Unknown]
  - Expired product administered [Unknown]
